FAERS Safety Report 17088145 (Version 2)
Quarter: 2019Q4

REPORT INFORMATION
  Report Type: Report from Study
  Country: DK (occurrence: DK)
  Receive Date: 20191128
  Receipt Date: 20191206
  Transmission Date: 20200122
  Serious: Yes (Hospitalization)
  Sender: FDA-Public Use
  Company Number: DK-ROCHE-2481304

PATIENT
  Age: 77 Year
  Sex: Male
  Weight: 73 kg

DRUGS (10)
  1. IBRUTINIB [Suspect]
     Active Substance: IBRUTINIB
     Indication: CHRONIC LYMPHOCYTIC LEUKAEMIA
     Dosage: DATE OF MOST RECENT DOSE OF IBRUTINIB (420 MG) ADMINISTERED PRIOR TO SAE ONSET: 14/NOV/2019
     Route: 065
     Dates: start: 20190711
  2. ALLOPURINOL. [Concomitant]
     Active Substance: ALLOPURINOL
     Route: 048
     Dates: start: 20190608
  3. PANTOPRAZOLE [Concomitant]
     Active Substance: PANTOPRAZOLE
     Route: 048
     Dates: start: 20190608
  4. OBINUTUZUMAB. [Suspect]
     Active Substance: OBINUTUZUMAB
     Indication: CHRONIC LYMPHOCYTIC LEUKAEMIA
     Dosage: DATE OF MOST RECENT DOSE OF OBINUTUZUMAB (1000 MG) ADMINISTERED PRIOR TO SAE ONSET: 01/NOV/2019
     Route: 065
     Dates: start: 20190711
  5. LOSARTAN. [Concomitant]
     Active Substance: LOSARTAN
     Route: 048
     Dates: start: 20171214
  6. DEXAMETHASONE. [Concomitant]
     Active Substance: DEXAMETHASONE
     Dosage: 1 DROP X 3 ML.
     Route: 065
     Dates: start: 20190913
  7. SULFAMETHOXAZOLE [Concomitant]
     Active Substance: SULFAMETHOXAZOLE
     Dosage: 800/160
     Route: 048
     Dates: start: 20190916
  8. CYCLOPENTOLATE. [Concomitant]
     Active Substance: CYCLOPENTOLATE
     Dosage: 1X2%
     Route: 065
     Dates: start: 20190913
  9. HYPROMELLOSE [Concomitant]
     Active Substance: HYPROMELLOSES
     Dosage: 1 DROP X 3 ML.
     Route: 065
     Dates: start: 20190913
  10. VENETOCLAX. [Suspect]
     Active Substance: VENETOCLAX
     Indication: CHRONIC LYMPHOCYTIC LEUKAEMIA
     Dosage: DATE OF MOST RECENT DOSE OF VENETOCLAX (400 MG) ADMINISTERED PRIOR TO SAE ONSET: 14/NOV/2019
     Route: 065
     Dates: start: 20190815

REACTIONS (1)
  - Localised infection [Recovered/Resolved]

NARRATIVE: CASE EVENT DATE: 20191114
